FAERS Safety Report 21103214 (Version 2)
Quarter: 2022Q4

REPORT INFORMATION
  Report Type: Spontaneous
  Country: JP (occurrence: JP)
  Receive Date: 20220720
  Receipt Date: 20221008
  Transmission Date: 20230112
  Serious: Yes (Hospitalization, Other)
  Sender: FDA-Public Use
  Company Number: JP-Accord-269951

PATIENT
  Age: 89 Year
  Sex: Female

DRUGS (1)
  1. LEVETIRACETAM [Suspect]
     Active Substance: LEVETIRACETAM
     Indication: Seizure prophylaxis
     Dosage: DOSE REDUCED TO 750 MG
     Route: 048

REACTIONS (2)
  - Myoclonus [Recovered/Resolved]
  - Paradoxical drug reaction [Recovered/Resolved]
